FAERS Safety Report 4938531-8 (Version None)
Quarter: 2006Q1

REPORT INFORMATION
  Report Type: 
  Country: None (occurrence: None)
  Receive Date: 20060302
  Receipt Date: 20060220
  Transmission Date: 20060701
  Serious: Yes (Hospitalization, Other)
  Sender: FDA-Public Use
  Company Number: HQWYE680006FEB06

PATIENT
  Age: 19 Year
  Sex: Male

DRUGS (4)
  1. RAPAMUNE [Suspect]
     Indication: PROPHYLAXIS AGAINST TRANSPLANT REJECTION
     Dosage: SEE IMAGE
     Route: 048
     Dates: start: 20051109, end: 20060201
  2. RAPAMUNE [Suspect]
     Indication: PROPHYLAXIS AGAINST TRANSPLANT REJECTION
     Dosage: SEE IMAGE
     Route: 048
     Dates: start: 20060208
  3. COTRIM [Concomitant]
  4. OMEPRAZOLE [Concomitant]

REACTIONS (3)
  - DRUG TOXICITY [None]
  - GRAFT DYSFUNCTION [None]
  - WHITE BLOOD CELL COUNT INCREASED [None]
